FAERS Safety Report 17708015 (Version 1)
Quarter: 2020Q2

REPORT INFORMATION
  Report Type: Spontaneous
  Country: US (occurrence: US)
  Receive Date: 20200425
  Receipt Date: 20200425
  Transmission Date: 20200714
  Serious: No
  Sender: FDA-Public Use
  Company Number: US-ASTRAZENECA-2020SE54598

PATIENT
  Age: 26364 Day
  Sex: Male
  Weight: 108.9 kg

DRUGS (6)
  1. LOVASTATIN. [Concomitant]
     Active Substance: LOVASTATIN
  2. METFORMIN [Concomitant]
     Active Substance: METFORMIN HYDROCHLORIDE
     Indication: DIABETES MELLITUS
  3. BYDUREON BCISE [Suspect]
     Active Substance: EXENATIDE
     Indication: DIABETES MELLITUS
     Route: 058
     Dates: start: 20200317
  4. BYDUREON BCISE [Suspect]
     Active Substance: EXENATIDE
     Indication: GLYCOSYLATED HAEMOGLOBIN DECREASED
     Route: 058
     Dates: start: 20200317
  5. LISINOPRIL/HCTZ [Concomitant]
     Active Substance: HYDROCHLOROTHIAZIDE\LISINOPRIL
     Indication: HYPERTENSION
     Route: 048
     Dates: start: 2010
  6. GLIPIZIDE. [Concomitant]
     Active Substance: GLIPIZIDE
     Indication: DIABETES MELLITUS

REACTIONS (5)
  - Device defective [Unknown]
  - Injection site pain [Not Recovered/Not Resolved]
  - Injection site erythema [Recovering/Resolving]
  - Incorrect dose administered by device [Unknown]
  - Intentional device misuse [Not Recovered/Not Resolved]

NARRATIVE: CASE EVENT DATE: 20200421
